FAERS Safety Report 10583492 (Version 2)
Quarter: 2014Q4

REPORT INFORMATION
  Report Type: Spontaneous
  Country: GB (occurrence: None)
  Receive Date: 20141112
  Receipt Date: 20141204
  Transmission Date: 20150529
  Serious: Yes (Hospitalization, Other)
  Sender: FDA-Public Use
  Company Number: ADR-2014-02092

PATIENT
  Age: 44 Year
  Sex: Female

DRUGS (10)
  1. METHYLPREDISOLONE [Concomitant]
     Active Substance: METHYLPREDNISOLONE
  2. BACLOFEN (BACLOFEN) [Suspect]
     Active Substance: BACLOFEN
     Dosage: (MANE)
     Dates: start: 20080430
  3. BACLOFEN (BACLOFEN) [Suspect]
     Active Substance: BACLOFEN
     Indication: LIMB DISCOMFORT
     Dosage: (MANE)
     Dates: start: 20080430
  4. GABAPENTIN. [Concomitant]
     Active Substance: GABAPENTIN
  5. COPAXONE [Concomitant]
     Active Substance: GLATIRAMER ACETATE
  6. AMANTADINE [Concomitant]
     Active Substance: AMANTADINE
  7. FLUOXETINE [Concomitant]
     Active Substance: FLUOXETINE\FLUOXETINE HYDROCHLORIDE
  8. CARBAMAZEPINE (CARBAMAZEPINE) [Suspect]
     Active Substance: CARBAMAZEPINE
  9. OXYBUTYNIN [Concomitant]
     Active Substance: OXYBUTYNIN
  10. DIAZEPAM. [Concomitant]
     Active Substance: DIAZEPAM

REACTIONS (30)
  - Cyanosis [None]
  - Ataxia [None]
  - Urinary incontinence [None]
  - Aphasia [None]
  - Abasia [None]
  - Somnolence [None]
  - Generalised tonic-clonic seizure [None]
  - Dyskinesia [None]
  - Muscle spasms [None]
  - Hemiparesis [None]
  - Muscle twitching [None]
  - Confusional state [None]
  - Clonus [None]
  - Mobility decreased [None]
  - Muscular weakness [None]
  - Loss of consciousness [None]
  - Respiratory arrest [None]
  - Pain in extremity [None]
  - Conjunctival haemorrhage [None]
  - Fall [None]
  - Asthenia [None]
  - Traumatic haemorrhage [None]
  - Dizziness [None]
  - Feeling abnormal [None]
  - Treatment noncompliance [None]
  - Autism spectrum disorder [None]
  - Multiple sclerosis relapse [None]
  - Bladder dysfunction [None]
  - Muscle tightness [None]
  - Head injury [None]

NARRATIVE: CASE EVENT DATE: 20090326
